FAERS Safety Report 12055158 (Version 1)
Quarter: 2016Q1

REPORT INFORMATION
  Report Type: Spontaneous
  Country: US (occurrence: US)
  Receive Date: 20160209
  Receipt Date: 20160209
  Transmission Date: 20160526
  Serious: Yes (Other)
  Sender: FDA-Public Use
  Company Number: US-HOSPIRA-3157721

PATIENT

DRUGS (8)
  1. PIRITREXIM ISETHIONATE. [Suspect]
     Active Substance: PIRITREXIM ISETHIONATE
     Indication: SQUAMOUS CELL CARCINOMA
     Dosage: ON DAYS 22-26 FOR 10 DOSES
     Route: 048
  2. FLUOROURACIL. [Suspect]
     Active Substance: FLUOROURACIL
     Indication: SQUAMOUS CELL CARCINOMA
     Dosage: 800 MG/M2/DAY, 120 H
     Route: 041
  3. LEUCOVORIN                         /00566701/ [Suspect]
     Active Substance: LEUCOVORIN
     Indication: SQUAMOUS CELL CARCINOMA
     Dosage: DURING CHEMOTHERAPY
     Route: 048
  4. PIRITREXIM ISETHIONATE. [Suspect]
     Active Substance: PIRITREXIM ISETHIONATE
     Indication: SQUAMOUS CELL CARCINOMA
     Dosage: FOR 10 DOSES
     Route: 048
  5. METHOTREXATE [Suspect]
     Active Substance: METHOTREXATE
     Indication: SQUAMOUS CELL CARCINOMA
     Dosage: ON DAY 15
  6. CISPLATIN. [Suspect]
     Active Substance: CISPLATIN
     Indication: SQUAMOUS CELL CARCINOMA
  7. METHOTREXATE [Suspect]
     Active Substance: METHOTREXATE
     Indication: SQUAMOUS CELL CARCINOMA
     Dosage: FOR 10 DOSES
  8. FLUOROURACIL. [Suspect]
     Active Substance: FLUOROURACIL
     Indication: SQUAMOUS CELL CARCINOMA
     Dosage: 60 HOURS (50%)
     Route: 041

REACTIONS (1)
  - Mucosal inflammation [Unknown]
